FAERS Safety Report 26126256 (Version 1)
Quarter: 2025Q4

REPORT INFORMATION
  Report Type: Spontaneous
  Country: TH (occurrence: TH)
  Receive Date: 20251205
  Receipt Date: 20251205
  Transmission Date: 20260117
  Serious: Yes (Death, Life-Threatening, Hospitalization, Other)
  Sender: RANBAXY
  Company Number: TH-SUN PHARMACEUTICAL INDUSTRIES LTD-2025R1-539621

PATIENT
  Age: 22 Year
  Sex: Male

DRUGS (2)
  1. ACETAMINOPHEN [Suspect]
     Active Substance: ACETAMINOPHEN
     Indication: Product used for unknown indication
     Dosage: 40 GRAM
     Route: 048
  2. HERBALS\MITRAGYNINE [Suspect]
     Active Substance: HERBALS\MITRAGYNINE
     Indication: Product used for unknown indication
     Dosage: 1 LITER
     Route: 048

REACTIONS (9)
  - Overdose [Fatal]
  - Liver injury [Fatal]
  - Hepatotoxicity [Fatal]
  - Condition aggravated [Fatal]
  - Glucose-6-phosphate dehydrogenase deficiency [Fatal]
  - Brain herniation [Fatal]
  - Coma [Fatal]
  - Brain oedema [Fatal]
  - Neurological decompensation [Fatal]
